FAERS Safety Report 5291817-2 (Version None)
Quarter: 2007Q2

REPORT INFORMATION
  Report Type: 
  Country: None (occurrence: None)
  Receive Date: 20070406
  Receipt Date: 20070406
  Transmission Date: 20071010
  Serious: Yes (Other)
  Sender: FDA-Public Use
  Company Number: None

PATIENT
  Age: 45 Year
  Sex: Female
  Weight: 122.4712 kg

DRUGS (1)
  1. VANCOMYCIN [Suspect]
     Indication: DEVICE RELATED INFECTION
     Dosage: 100 ML INT 2 X DAY
     Dates: start: 20061222

REACTIONS (17)
  - AMNESIA [None]
  - DIARRHOEA [None]
  - DRUG WITHDRAWAL SYNDROME [None]
  - FEELING ABNORMAL [None]
  - GLOSSODYNIA [None]
  - HALLUCINATION, VISUAL [None]
  - HOMICIDAL IDEATION [None]
  - HYPERHIDROSIS [None]
  - HYPOAESTHESIA [None]
  - LIP PAIN [None]
  - MENTAL DISORDER [None]
  - ORAL MUCOSAL BLISTERING [None]
  - PHARYNGOLARYNGEAL PAIN [None]
  - SUICIDAL IDEATION [None]
  - TINNITUS [None]
  - VISION BLURRED [None]
  - VOMITING [None]
